FAERS Safety Report 4372605-8 (Version None)
Quarter: 2004Q2

REPORT INFORMATION
  Report Type: 
  Country: None (occurrence: None)
  Receive Date: 20040526
  Receipt Date: 20040514
  Transmission Date: 20050107
  Serious: Yes (Hospitalization)
  Sender: FDA-Public Use
  Company Number: 04P-083-0261324-00

PATIENT
  Age: 27 Year
  Sex: Female

DRUGS (4)
  1. SYNTHROID [Suspect]
     Indication: OFF LABEL USE
     Dosage: PER ORAL
     Route: 048
  2. CARNITINE [Concomitant]
  3. EPHEDRINE [Concomitant]
  4. CAFFEINE [Concomitant]

REACTIONS (8)
  - ANAEMIA [None]
  - CONFUSIONAL STATE [None]
  - CONVULSION [None]
  - ELECTROENCEPHALOGRAM ABNORMAL [None]
  - HEADACHE [None]
  - IRRITABILITY [None]
  - PSYCHOMOTOR RETARDATION [None]
  - THYROID FUNCTION TEST ABNORMAL [None]
